FAERS Safety Report 15769968 (Version 2)
Quarter: 2019Q1

REPORT INFORMATION
  Report Type: Spontaneous
  Country: CN (occurrence: CN)
  Receive Date: 20181228
  Receipt Date: 20190108
  Transmission Date: 20190417
  Serious: Yes (Hospitalization, Other)
  Sender: FDA-Public Use
  Company Number: CN-ACCORD-097914

PATIENT
  Age: 33 Year
  Sex: Female

DRUGS (1)
  1. METHOTREXATE. [Suspect]
     Active Substance: METHOTREXATE
     Indication: SYSTEMIC LUPUS ERYTHEMATOSUS

REACTIONS (10)
  - Incorrect dose administered [Unknown]
  - Platelet count decreased [Recovered/Resolved]
  - Sepsis [Recovered/Resolved]
  - Mouth ulceration [Recovering/Resolving]
  - Bone marrow failure [Recovered/Resolved]
  - Ulcer haemorrhage [Recovered/Resolved]
  - Toxicity to various agents [Unknown]
  - Leptotrichia infection [Recovered/Resolved]
  - Neutropenia [Recovered/Resolved]
  - Stomatitis [Recovering/Resolving]
